FAERS Safety Report 4734825-X (Version None)
Quarter: 2005Q3

REPORT INFORMATION
  Report Type: 
  Country: None (occurrence: None)
  Receive Date: 20050721
  Receipt Date: 20050425
  Transmission Date: 20060218
  Serious: No
  Sender: FDA-Public Use
  Company Number: 2005SP000337

PATIENT
  Age: 65 Year
  Sex: Female
  Weight: 53.5244 kg

DRUGS (1)
  1. LUNESTA [Suspect]
     Dosage: 2 MG;HS
     Dates: start: 20050424

REACTIONS (1)
  - INITIAL INSOMNIA [None]
